FAERS Safety Report 23723148 (Version 3)
Quarter: 2024Q2

REPORT INFORMATION
  Report Type: Spontaneous
  Country: BE (occurrence: None)
  Receive Date: 20240409
  Receipt Date: 20240520
  Transmission Date: 20240716
  Serious: Yes (Other)
  Sender: FDA-Public Use
  Company Number: BE-ROCHE-3538106

PATIENT
  Sex: Female

DRUGS (2)
  1. TOCILIZUMAB [Suspect]
     Active Substance: TOCILIZUMAB
     Indication: Takayasu^s arteritis
     Dosage: 4 MGR/2MGR
     Route: 058
     Dates: start: 20220602
  2. METHYLPREDNISOLONE [Concomitant]
     Active Substance: METHYLPREDNISOLONE

REACTIONS (8)
  - Sinusitis fungal [Recovering/Resolving]
  - Chronic rhinosinusitis with nasal polyps [Recovering/Resolving]
  - Lipids increased [Recovering/Resolving]
  - Sinusitis [Unknown]
  - Off label use [Unknown]
  - Infection [Unknown]
  - Nail psoriasis [Unknown]
  - Headache [Unknown]

NARRATIVE: CASE EVENT DATE: 20231201
